FAERS Safety Report 8381045-6 (Version None)
Quarter: 2012Q2

REPORT INFORMATION
  Report Type: 
  Country: None (occurrence: None)
  Receive Date: 20120523
  Receipt Date: 20120518
  Transmission Date: 20120825
  Serious: Yes (Life-Threatening, Hospitalization)
  Sender: FDA-Public Use
  Company Number: US-BAYER-2012-049801

PATIENT
  Sex: Female

DRUGS (1)
  1. AVELOX [Suspect]
     Indication: SINUSITIS
     Dosage: 4004 MG, ONCE
     Route: 048

REACTIONS (5)
  - THROAT TIGHTNESS [None]
  - ERYTHEMA [None]
  - URTICARIA [None]
  - ABDOMINAL PAIN [None]
  - BURNING SENSATION [None]
